FAERS Safety Report 9508136 (Version 1)
Quarter: 2013Q1

REPORT INFORMATION
  Report Type: Spontaneous
  Country: US (occurrence: None)
  Receive Date: 20130305
  Receipt Date: 20130305
  Transmission Date: 20140127
  Serious: Yes (Other)
  Sender: FDA-Public Use
  Company Number: 163-21880-12082618

PATIENT
  Age: 86 Year
  Sex: Female

DRUGS (1)
  1. REVLIMID [Suspect]
     Indication: MYELODYSPLASTIC SYNDROME
     Dosage: CAPSULE, 10 MG, 21 IN 21 D, PO
     Dates: start: 20120719, end: 20120911

REACTIONS (3)
  - Pulmonary embolism [None]
  - Myalgia [None]
  - Abdominal pain [None]
